FAERS Safety Report 18870550 (Version 1)
Quarter: 2021Q1

REPORT INFORMATION
  Report Type: Spontaneous
  Country: US (occurrence: US)
  Receive Date: 20210210
  Receipt Date: 20210210
  Transmission Date: 20210420
  Serious: No
  Sender: FDA-Public Use
  Company Number: US-ELI_LILLY_AND_COMPANY-US202102003295

PATIENT
  Age: 63 Year
  Sex: Female

DRUGS (3)
  1. EMGALITY [Suspect]
     Active Substance: GALCANEZUMAB-GNLM
     Dosage: UNK UNK, UNKNOWN
     Route: 065
  2. MAGNESIUM [Suspect]
     Active Substance: MAGNESIUM
     Indication: PRODUCT USED FOR UNKNOWN INDICATION
     Dosage: UNK UNK, UNKNOWN
     Route: 065
  3. EMGALITY [Suspect]
     Active Substance: GALCANEZUMAB-GNLM
     Indication: MIGRAINE
     Dosage: UNK UNK, UNKNOWN
     Route: 065
     Dates: start: 20201222

REACTIONS (14)
  - Haematochezia [Unknown]
  - Injection site erythema [Recovered/Resolved]
  - Injection site pain [Unknown]
  - Underdose [Unknown]
  - Abnormal faeces [Unknown]
  - Faeces discoloured [Unknown]
  - Injection site swelling [Recovered/Resolved]
  - Malaise [Unknown]
  - Constipation [Unknown]
  - Rash [Unknown]
  - Injection site rash [Recovered/Resolved]
  - Blood pressure diastolic increased [Unknown]
  - Muscle spasms [Unknown]
  - Anal incontinence [Unknown]

NARRATIVE: CASE EVENT DATE: 20201222
